FAERS Safety Report 6512441-7 (Version None)
Quarter: 2009Q4

REPORT INFORMATION
  Report Type: 
  Country: None (occurrence: None)
  Receive Date: 20091222
  Receipt Date: 20091217
  Transmission Date: 20100525
  Serious: Yes (Other)
  Sender: FDA-Public Use
  Company Number: FR-GILEAD-2009-0026071

PATIENT
  Age: 59 Year
  Sex: Male

DRUGS (9)
  1. TRUVADA [Suspect]
     Indication: HIV INFECTION
  2. REYATAZ [Concomitant]
     Indication: HIV INFECTION
  3. NORVIR [Concomitant]
     Indication: HIV INFECTION
  4. BACTRIM [Concomitant]
  5. AZADOSE [Concomitant]
  6. RAMIPRIL [Concomitant]
     Indication: HYPERTENSION
  7. TEMERIT [Concomitant]
  8. DIFFU K [Concomitant]
  9. IMODIUM [Concomitant]

REACTIONS (3)
  - DYSPNOEA [None]
  - GAIT DISTURBANCE [None]
  - PERIPHERAL MOTOR NEUROPATHY [None]
